FAERS Safety Report 23693775 (Version 1)
Quarter: 2024Q2

REPORT INFORMATION
  Report Type: Spontaneous
  Country: AT (occurrence: AT)
  Receive Date: 20240401
  Receipt Date: 20240401
  Transmission Date: 20240716
  Serious: Yes (Other)
  Sender: FDA-Public Use
  Company Number: AT-TEVA-VS-3175623

PATIENT
  Sex: Male

DRUGS (1)
  1. METHOTREXATE SODIUM [Suspect]
     Active Substance: METHOTREXATE SODIUM
     Dosage: FOR OVER 2 YEARS, MTX-RATIOPHARM
     Route: 065

REACTIONS (2)
  - Lip swelling [Unknown]
  - Urticaria [Unknown]
